FAERS Safety Report 19861453 (Version 1)
Quarter: 2021Q3

REPORT INFORMATION
  Report Type: Spontaneous
  Country: CH (occurrence: CH)
  Receive Date: 20210920
  Receipt Date: 20210920
  Transmission Date: 20211014
  Serious: Yes (Other)
  Sender: FDA-Public Use
  Company Number: CH-PFIZER INC-202101167852

PATIENT
  Age: 15 Year
  Sex: Female

DRUGS (6)
  1. ESCITALOPRAM [Concomitant]
     Active Substance: ESCITALOPRAM OXALATE
     Dosage: 20 MG, LONG?TERM BASIS
  2. HALDOL [Suspect]
     Active Substance: HALOPERIDOL
     Indication: SEDATION
     Dosage: 5 MG, SINGLE
  3. ABILIFY [Concomitant]
     Active Substance: ARIPIPRAZOLE
     Dosage: 15 MG, LONG?TERM BASIS
  4. TEMESTA (LORAZEPAM) [Suspect]
     Active Substance: LORAZEPAM
     Indication: SEDATION
     Dosage: 2.5 MG, SINGLE
  5. TRUXAL [CHLORPROTHIXENE HYDROCHLORIDE] [Concomitant]
     Active Substance: CHLORPROTHIXENE
     Dosage: 15 MG, LONG?TERM BASIS
  6. TRUXAL [CHLORPROTHIXENE HYDROCHLORIDE] [Suspect]
     Active Substance: CHLORPROTHIXENE
     Indication: SEDATION
     Dosage: 30 MG, SINGLE

REACTIONS (2)
  - Apnoea [Recovering/Resolving]
  - Oxygen saturation decreased [Recovered/Resolved]
